FAERS Safety Report 24308310 (Version 1)
Quarter: 2024Q3

REPORT INFORMATION
  Report Type: Spontaneous
  Country: US (occurrence: US)
  Receive Date: 20240911
  Receipt Date: 20240911
  Transmission Date: 20241017
  Serious: No
  Sender: BAYER
  Company Number: US-BAYER-2024A127477

PATIENT
  Age: 54 Year
  Sex: Female

DRUGS (1)
  1. CLIMARA PRO [Suspect]
     Active Substance: ESTRADIOL\LEVONORGESTREL
     Indication: Post-acute COVID-19 syndrome
     Dosage: 1 PATCH/WEEK
     Route: 062
     Dates: start: 20240801

REACTIONS (4)
  - Device adhesion issue [None]
  - Wrong technique in product usage process [None]
  - Device use issue [None]
  - Off label use of device [None]

NARRATIVE: CASE EVENT DATE: 20240801
